FAERS Safety Report 6729794-7 (Version None)
Quarter: 2010Q2

REPORT INFORMATION
  Report Type: 
  Country: None (occurrence: None)
  Receive Date: 20100518
  Receipt Date: 20100506
  Transmission Date: 20101027
  Serious: Yes (Death)
  Sender: FDA-Public Use
  Company Number: MY-PFIZER INC-2010057365

PATIENT
  Sex: Female

DRUGS (2)
  1. ZELDOX [Suspect]
     Indication: AGITATION
     Dosage: 20 MG, UNK
     Route: 030
     Dates: start: 20100430, end: 20100502
  2. OLANZAPINE [Concomitant]
     Dosage: 15 MG, UNK

REACTIONS (1)
  - DEATH [None]
